FAERS Safety Report 6278651-1 (Version None)
Quarter: 2009Q3

REPORT INFORMATION
  Report Type: 
  Country: None (occurrence: None)
  Receive Date: 20090722
  Receipt Date: 20090522
  Transmission Date: 20100115
  Serious: No
  Sender: FDA-Public Use
  Company Number: US-BAUSCH-2009BL002509

PATIENT
  Age: 65 Year
  Sex: Female
  Weight: 67 kg

DRUGS (4)
  1. OPCON-A [Suspect]
     Indication: EYE PRURITUS
     Route: 047
     Dates: start: 20070101
  2. OPCON-A [Suspect]
     Indication: OCULAR HYPERAEMIA
     Route: 047
     Dates: start: 20070101
  3. REFRESH PLUS [Concomitant]
     Indication: DRY EYE
     Route: 047
     Dates: start: 20070101
  4. NO MORE TEARS [Concomitant]
     Indication: DRY EYE
     Route: 047
     Dates: start: 20070101

REACTIONS (3)
  - DRY EYE [None]
  - ERYTHEMA OF EYELID [None]
  - EXPIRED DRUG ADMINISTERED [None]
